FAERS Safety Report 12823211 (Version 1)
Quarter: 2016Q4

REPORT INFORMATION
  Report Type: Report from Study
  Country: US (occurrence: US)
  Receive Date: 20161007
  Receipt Date: 20161007
  Transmission Date: 20170207
  Serious: Yes (Hospitalization, Other)
  Sender: FDA-Public Use
  Company Number: US-GILEAD-2016-0236871

PATIENT
  Age: 68 Year
  Sex: Male

DRUGS (1)
  1. AMBRISENTAN [Suspect]
     Active Substance: AMBRISENTAN
     Indication: PRODUCT USED FOR UNKNOWN INDICATION
     Dosage: 10 MG, UNK
     Route: 065

REACTIONS (4)
  - Hypotension [Unknown]
  - Drug dose omission [Recovered/Resolved]
  - Dehydration [Unknown]
  - Pneumonia [Unknown]

NARRATIVE: CASE EVENT DATE: 20160908
